FAERS Safety Report 7376529-3 (Version None)
Quarter: 2011Q1

REPORT INFORMATION
  Report Type: 
  Country: None (occurrence: None)
  Receive Date: 20110325
  Receipt Date: 20110212
  Transmission Date: 20110831
  Serious: No
  Sender: FDA-Public Use
  Company Number: US-B.I. PHARMACEUTICALS,INC./RIDGEFIELD-2011-BP-02141BP

PATIENT
  Sex: Male

DRUGS (4)
  1. PRADAXA [Suspect]
     Indication: ATRIAL FIBRILLATION
     Dosage: 300 MG
     Route: 048
     Dates: start: 20101101
  2. DIGOXIN [Suspect]
     Indication: ATRIAL FIBRILLATION
     Dates: start: 20101101
  3. QUINAPRIL [Concomitant]
     Indication: HYPERTENSION
  4. METOPROLOL [Suspect]
     Indication: HYPERTENSION
     Dates: start: 20101101

REACTIONS (4)
  - PAIN IN EXTREMITY [None]
  - DIARRHOEA [None]
  - MUSCULOSKELETAL PAIN [None]
  - VOMITING [None]
